FAERS Safety Report 14751016 (Version 2)
Quarter: 2019Q2

REPORT INFORMATION
  Report Type: Report from Study
  Country: BR (occurrence: BR)
  Receive Date: 20180412
  Receipt Date: 20190501
  Transmission Date: 20190711
  Serious: Yes (Hospitalization)
  Sender: FDA-Public Use
  Company Number: BR-ROCHE-2105051

PATIENT
  Sex: Female
  Weight: 98 kg

DRUGS (3)
  1. XOLAIR [Suspect]
     Active Substance: OMALIZUMAB
     Dosage: (2 AMPOULES)
     Route: 058
     Dates: start: 20190415
  2. XOLAIR [Suspect]
     Active Substance: OMALIZUMAB
     Indication: URTICARIA
     Dosage: (2 AMPOULES)
     Route: 058
     Dates: start: 20180129
  3. XOLAIR [Suspect]
     Active Substance: OMALIZUMAB
     Dosage: (2 AMPOULES)
     Route: 058
     Dates: start: 201903

REACTIONS (4)
  - Menorrhagia [Recovered/Resolved]
  - Malaise [Recovered/Resolved]
  - Headache [Recovered/Resolved]
  - Asthenia [Recovered/Resolved]
